FAERS Safety Report 25667423 (Version 1)
Quarter: 2025Q3

REPORT INFORMATION
  Report Type: Report from Study
  Country: US (occurrence: US)
  Receive Date: 20250811
  Receipt Date: 20250811
  Transmission Date: 20251020
  Serious: No
  Sender: PFIZER
  Company Number: US-PFIZER INC-2004011727

PATIENT
  Age: 22 Year
  Sex: Female

DRUGS (8)
  1. VIRACEPT [Suspect]
     Active Substance: NELFINAVIR MESYLATE
     Indication: HIV infection
     Dosage: 2500 MG/DAY (COURSE 1)
     Route: 048
     Dates: start: 20040213
  2. KALETRA [Suspect]
     Active Substance: LOPINAVIR\RITONAVIR
     Indication: HIV infection
     Dosage: UNK, 2X/DAY (COURSE 1, DOSE 6)
     Route: 048
     Dates: start: 20040206, end: 20040213
  3. LOPINAVIR\RITONAVIR [Suspect]
     Active Substance: LOPINAVIR\RITONAVIR
     Indication: HIV infection
     Dosage: UNK, 2X/DAY (COURSE 1, DOSE 6)
     Dates: start: 20040206, end: 20040213
  4. COMBIVIR [Suspect]
     Active Substance: LAMIVUDINE\ZIDOVUDINE
     Route: 048
     Dates: start: 20040206, end: 20040511
  5. VIDEX EC [Suspect]
     Active Substance: DIDANOSINE
     Dosage: 250 MG/DAY (COURSE 1); VIDEX EC, DDL
     Route: 048
     Dates: start: 20040511
  6. VIREAD [Suspect]
     Active Substance: TENOFOVIR DISOPROXIL FUMARATE
     Dosage: 300 MG/DAY (COURSE 1)
     Route: 048
     Dates: start: 20040511
  7. REYATAZ [Suspect]
     Active Substance: ATAZANAVIR SULFATE
     Dosage: 300 MG/DAY (COURSE 1); REYATAZ, ATV
     Route: 048
     Dates: start: 20040511
  8. NORVIR [Suspect]
     Active Substance: RITONAVIR
     Dosage: 1200 MG/DAY (COURSE 1); NORVIR, RTV
     Route: 048
     Dates: start: 20040511

REACTIONS (1)
  - Maternal exposure during pregnancy [Unknown]
